FAERS Safety Report 15023568 (Version 1)
Quarter: 2018Q2

REPORT INFORMATION
  Report Type: Spontaneous
  Country: US (occurrence: US)
  Receive Date: 20180524
  Receipt Date: 20180524
  Transmission Date: 20180711
  Serious: Yes (Hospitalization)
  Sender: FDA-Public Use
  Company Number: None

PATIENT
  Age: 52 Year
  Weight: 76.8 kg

DRUGS (20)
  1. ATORVASTATIN [Concomitant]
     Active Substance: ATORVASTATIN
  2. ONDANSETRON [Concomitant]
     Active Substance: ONDANSETRON
  3. LIDODERM [Concomitant]
     Active Substance: LIDOCAINE
  4. COMPAZINE [Concomitant]
     Active Substance: PROCHLORPERAZINE MALEATE
  5. MULTIVITAMINS [Concomitant]
     Active Substance: VITAMINS
  6. MIRALAX [Concomitant]
     Active Substance: POLYETHYLENE GLYCOL 3350
  7. LEVOFLOXACIN. [Concomitant]
     Active Substance: LEVOFLOXACIN
  8. GEMCITABINE [Suspect]
     Active Substance: GEMCITABINE\GEMCITABINE HYDROCHLORIDE
     Route: 042
     Dates: start: 20180328
  9. LEE011, RIBOCICLIB [Suspect]
     Active Substance: RIBOCICLIB
     Route: 048
     Dates: start: 20180404
  10. SENNA [Concomitant]
     Active Substance: SENNA LEAF\SENNOSIDES\SENNOSIDES A AND B
  11. VITAMIN D3 [Concomitant]
     Active Substance: CHOLECALCIFEROL
  12. OMEPRAZOLE. [Concomitant]
     Active Substance: OMEPRAZOLE
  13. PERCOCET [Concomitant]
     Active Substance: ACETAMINOPHEN\OXYCODONE HYDROCHLORIDE
  14. MIRTAZAPINE. [Concomitant]
     Active Substance: MIRTAZAPINE
  15. MESALAMINE. [Concomitant]
     Active Substance: MESALAMINE
  16. OLANZAPINE. [Concomitant]
     Active Substance: OLANZAPINE
  17. GEMCITABINE [Suspect]
     Active Substance: GEMCITABINE\GEMCITABINE HYDROCHLORIDE
     Dates: start: 20180404
  18. LEE011, RIBOCICLIB [Suspect]
     Active Substance: RIBOCICLIB
     Dates: start: 20180410
  19. GABAPENTIN. [Concomitant]
     Active Substance: GABAPENTIN
  20. METOPROLOL. [Concomitant]
     Active Substance: METOPROLOL

REACTIONS (11)
  - Neurogenic bladder [None]
  - Hypotonia [None]
  - Spinal cord compression [None]
  - Muscular weakness [None]
  - Hypoaesthesia [None]
  - Myelopathy [None]
  - Neurogenic bowel [None]
  - Back pain [None]
  - Therapy change [None]
  - Paraplegia [None]
  - Urinary retention [None]

NARRATIVE: CASE EVENT DATE: 20180519
